FAERS Safety Report 16967306 (Version 4)
Quarter: 2021Q2

REPORT INFORMATION
  Report Type: Report from Study
  Country: DE (occurrence: DE)
  Receive Date: 20191028
  Receipt Date: 20210603
  Transmission Date: 20210716
  Serious: No
  Sender: FDA-Public Use
  Company Number: DE-SHIRE-DE201929100

PATIENT
  Age: 35 Year
  Sex: Female

DRUGS (5)
  1. LANADELUMAB [Suspect]
     Active Substance: LANADELUMAB
     Dosage: 300 MILLIGRAM, EVERY 35 DAYS
     Route: 058
     Dates: end: 20210501
  2. LANADELUMAB [Suspect]
     Active Substance: LANADELUMAB
     Dosage: UNK
     Route: 065
     Dates: start: 201906
  3. LANADELUMAB [Suspect]
     Active Substance: LANADELUMAB
     Dosage: 300 MILLIGRAM, EVERY 3 WK
     Route: 058
     Dates: start: 20190903
  4. LANADELUMAB [Suspect]
     Active Substance: LANADELUMAB
     Indication: HEREDITARY ANGIOEDEMA
     Dosage: 300 MILLIGRAM, EVERY 3 WK
     Route: 058
     Dates: start: 20190620
  5. LANADELUMAB [Suspect]
     Active Substance: LANADELUMAB
     Dosage: UNK MILLIGRAM, EVERY 3 WK
     Route: 058
     Dates: start: 20190928

REACTIONS (4)
  - Headache [Unknown]
  - Liver function test increased [Unknown]
  - Nausea [Recovered/Resolved]
  - Injection site pain [Recovered/Resolved]

NARRATIVE: CASE EVENT DATE: 201909
